FAERS Safety Report 18526519 (Version 1)
Quarter: 2020Q4

REPORT INFORMATION
  Report Type: Report from Study
  Country: None (occurrence: US)
  Receive Date: 20201120
  Receipt Date: 20201120
  Transmission Date: 20210114
  Serious: Yes (Other)
  Sender: FDA-Public Use
  Company Number: US-ABBVIE-20K-163-3642413-00

PATIENT
  Age: 71 Year
  Sex: Female
  Weight: 104.42 kg

DRUGS (2)
  1. SYNTHROID [Suspect]
     Active Substance: LEVOTHYROXINE SODIUM
     Indication: HYPOTHYROIDISM
     Route: 048
     Dates: start: 1980
  2. SYNTHROID [Suspect]
     Active Substance: LEVOTHYROXINE SODIUM
     Route: 048
     Dates: start: 20201104, end: 20201106

REACTIONS (15)
  - Head discomfort [Recovering/Resolving]
  - Eye pain [Recovering/Resolving]
  - Abdominal discomfort [Recovering/Resolving]
  - Myalgia [Not Recovered/Not Resolved]
  - Visual impairment [Recovering/Resolving]
  - Swelling [Recovering/Resolving]
  - Spinal pain [Not Recovered/Not Resolved]
  - Pain in extremity [Unknown]
  - Back pain [Recovering/Resolving]
  - Vision blurred [Not Recovered/Not Resolved]
  - Joint range of motion decreased [Not Recovered/Not Resolved]
  - Dysstasia [Unknown]
  - Pharyngeal swelling [Recovering/Resolving]
  - Peripheral swelling [Recovering/Resolving]
  - Joint swelling [Recovering/Resolving]

NARRATIVE: CASE EVENT DATE: 20201104
